FAERS Safety Report 9564554 (Version 2)
Quarter: 2014Q1

REPORT INFORMATION
  Report Type: Spontaneous
  Country: US (occurrence: US)
  Receive Date: 20130930
  Receipt Date: 20140226
  Transmission Date: 20141002
  Serious: No
  Sender: FDA-Public Use
  Company Number: US-PFIZER INC-2013278064

PATIENT
  Age: 65 Year
  Sex: Female

DRUGS (2)
  1. XALKORI [Suspect]
     Dosage: 250 MG, 2X/DAY
     Route: 048
     Dates: start: 20130708
  2. XALKORI [Suspect]
     Dosage: 200 MG, EVERY 12 HRS
     Route: 048
     Dates: start: 201307

REACTIONS (8)
  - Cough [Unknown]
  - Musculoskeletal chest pain [Unknown]
  - Nausea [Unknown]
  - Pruritus [Unknown]
  - Muscle spasms [Unknown]
  - Eye pain [Unknown]
  - Pain in extremity [Unknown]
  - Headache [Unknown]
